FAERS Safety Report 11931369 (Version 2)
Quarter: 2016Q1

REPORT INFORMATION
  Report Type: Report from Study
  Country: US (occurrence: US)
  Receive Date: 20160120
  Receipt Date: 20160126
  Transmission Date: 20160526
  Serious: Yes (Other)
  Sender: FDA-Public Use
  Company Number: US-GILEAD-2016-0193104

PATIENT
  Age: 57 Year
  Sex: Female

DRUGS (1)
  1. LEDIPASVIR/SOFOSBUVIR [Suspect]
     Active Substance: LEDIPASVIR\SOFOSBUVIR
     Indication: CHRONIC HEPATITIS C
     Dosage: 1 DF, UNK
     Route: 048
     Dates: start: 201512

REACTIONS (8)
  - Myocardial infarction [Unknown]
  - Fatigue [Unknown]
  - Headache [Unknown]
  - Back disorder [Unknown]
  - Elbow deformity [Unknown]
  - Foot fracture [Unknown]
  - Insomnia [Unknown]
  - Stress [Unknown]
